FAERS Safety Report 7299432 (Version 2)
Quarter: 2014Q3

REPORT INFORMATION
  Report Type: Spontaneous
  Country: US (occurrence: None)
  Receive Date: 20100203
  Receipt Date: 20140820
  Transmission Date: 20150326
  Serious: Yes (Hospitalization, Other)
  Sender: FDA-Public Use
  Company Number: 2010S1000453

PATIENT
  Age: 72 Year
  Sex: Female
  Weight: 58 kg

DRUGS (17)
  1. DILTIAZEM [Concomitant]
     Active Substance: DILTIAZEM
  2. PRAVACHOL [Concomitant]
     Active Substance: PRAVASTATIN SODIUM
  3. ASPIRIN. [Concomitant]
     Active Substance: ASPIRIN
  4. ATENOLOL. [Concomitant]
     Active Substance: ATENOLOL
  5. ACCUPRIL [Concomitant]
     Active Substance: QUINAPRIL HYDROCHLORIDE
  6. PRILOSEC [Concomitant]
     Active Substance: OMEPRAZOLE MAGNESIUM
  7. NIASPAN (NICOTIIC ACID) [Concomitant]
  8. SODIUM PHOSPHATE, DIBASIC\SODIUM PHOSPHATE, MONOBASIC, ANHYDROUS [Suspect]
     Active Substance: SODIUM PHOSPHATE, DIBASIC\SODIUM PHOSPHATE, MONOBASIC, ANHYDROUS
     Indication: COLONOSCOPY
     Dosage: PO
     Route: 048
     Dates: start: 20030109
  9. FOLIC ACID. [Concomitant]
     Active Substance: FOLIC ACID
  10. FISH OIL [Concomitant]
     Active Substance: FISH OIL
  11. VITAMIN B12 [Concomitant]
     Active Substance: CYANOCOBALAMIN
  12. NAPRELAN [Concomitant]
     Active Substance: NAPROXEN SODIUM
  13. NITROQUICK (GLYCERYL TRINITRATE) [Concomitant]
  14. CO ENZYME [Concomitant]
  15. VITAMIN B6 [Concomitant]
     Active Substance: PYRIDOXINE HYDROCHLORIDE
  16. PREMARIN [Concomitant]
     Active Substance: ESTROGENS, CONJUGATED
  17. GLUCOSAMINE (GLUCOSAMINE) [Concomitant]
     Active Substance: GLUCOSAMINE

REACTIONS (15)
  - Post procedural complication [None]
  - Vomiting [None]
  - Disease recurrence [None]
  - Nephrogenic anaemia [None]
  - Diarrhoea [None]
  - Dry skin [None]
  - Nausea [None]
  - Metabolic acidosis [None]
  - Dry mouth [None]
  - Renal failure acute [None]
  - Temperature intolerance [None]
  - Renal failure chronic [None]
  - Nocturia [None]
  - Abdominal pain upper [None]
  - Hypovolaemia [None]

NARRATIVE: CASE EVENT DATE: 20030129
